FAERS Safety Report 7907770-6 (Version None)
Quarter: 2011Q4

REPORT INFORMATION
  Report Type: 
  Country: None (occurrence: None)
  Receive Date: 20111110
  Receipt Date: 20111011
  Transmission Date: 20120403
  Serious: No
  Sender: FDA-Public Use
  Company Number: US-B.I. PHARMACEUTICALS,INC./RIDGEFIELD-2011-BP-24049BP

PATIENT
  Age: 64 Year
  Sex: Female

DRUGS (1)
  1. TRADJENTA [Suspect]
     Indication: TYPE 2 DIABETES MELLITUS
     Dosage: 5 MG
     Route: 048
     Dates: start: 20110915, end: 20110918

REACTIONS (5)
  - RHINORRHOEA [None]
  - ANXIETY [None]
  - DYSPNOEA [None]
  - CHEST DISCOMFORT [None]
  - NAUSEA [None]
